FAERS Safety Report 25906373 (Version 1)
Quarter: 2025Q4

REPORT INFORMATION
  Report Type: Spontaneous
  Country: US (occurrence: None)
  Receive Date: 20251009
  Receipt Date: 20251009
  Transmission Date: 20260117
  Serious: Yes (Other)
  Sender: FDA-CTU
  Company Number: None

PATIENT
  Age: 68 Year
  Sex: Female
  Weight: 56.65 kg

DRUGS (2)
  1. PROLIA [Suspect]
     Active Substance: DENOSUMAB
     Dosage: 1 MG/ML EVERY 6 MONTHS SUBCUTANEOUS
     Route: 058
  2. PROLIA [Concomitant]
     Active Substance: DENOSUMAB
     Dates: start: 20250920

REACTIONS (1)
  - Rash [None]

NARRATIVE: CASE EVENT DATE: 20251009
